FAERS Safety Report 24031661 (Version 1)
Quarter: 2024Q2

REPORT INFORMATION
  Report Type: Report from Study
  Country: ZA (occurrence: ZA)
  Receive Date: 20240629
  Receipt Date: 20240629
  Transmission Date: 20240716
  Serious: Yes (Hospitalization, Other)
  Sender: FDA-Public Use
  Company Number: ZA-ABBVIE-5818919

PATIENT
  Age: 25 Year
  Sex: Female

DRUGS (1)
  1. BOTOX [Suspect]
     Active Substance: BOTULINUM TOXIN TYPE A\ONABOTULINUMTOXINA
     Indication: Muscle spasticity
     Dosage: TIME INTERVAL: AS NECESSARY: FORM STRENGTH: 200UNIT. FREQUENCY EVERY 3 MONTHS
     Route: 065
     Dates: start: 20221214, end: 20221214

REACTIONS (1)
  - Spinal laminectomy [Unknown]
